FAERS Safety Report 17494630 (Version 1)
Quarter: 2020Q1

REPORT INFORMATION
  Report Type: Spontaneous
  Country: US (occurrence: US)
  Receive Date: 20200303
  Receipt Date: 20200303
  Transmission Date: 20200409
  Serious: No
  Sender: FDA-Public Use
  Company Number: US-AMNEAL PHARMACEUTICALS-2019-IPXL-01518

PATIENT
  Sex: Female

DRUGS (2)
  1. RYTARY [Suspect]
     Active Substance: CARBIDOPA\LEVODOPA
     Dosage: 48.75MG/195MG, 1-2 CAPSULES EVERY 3-4 HOURS (NOT MORE THAN 9 PER DAY)
     Route: 048
     Dates: start: 201907
  2. RYTARY [Suspect]
     Active Substance: CARBIDOPA\LEVODOPA
     Indication: PARKINSON^S DISEASE
     Dosage: 61.25MG/245MG, UNK
     Route: 065

REACTIONS (4)
  - Lip swelling [Recovering/Resolving]
  - Therapeutic response shortened [Unknown]
  - Speech disorder [Recovering/Resolving]
  - Hyperhidrosis [Recovering/Resolving]

NARRATIVE: CASE EVENT DATE: 2019
